FAERS Safety Report 18519467 (Version 1)
Quarter: 2020Q4

REPORT INFORMATION
  Report Type: Spontaneous
  Country: US (occurrence: US)
  Receive Date: 20201118
  Receipt Date: 20201118
  Transmission Date: 20210114
  Serious: Yes (Other)
  Sender: FDA-Public Use
  Company Number: US-VERTEX PHARMACEUTICALS-2020-021514

PATIENT

DRUGS (1)
  1. TRIKAFTA [Suspect]
     Active Substance: ELEXACAFTOR\IVACAFTOR\TEZACAFTOR
     Indication: CYSTIC FIBROSIS
     Dosage: (100 MG ELEXACAFTOR/50 MG TEZACAFTOR/75 MG IVACAFTOR; 150 MG IVACAFTOR) TABS, FREQ UNK
     Route: 048

REACTIONS (7)
  - Rash [Unknown]
  - Infective pulmonary exacerbation of cystic fibrosis [Unknown]
  - Weight increased [Unknown]
  - Transaminases increased [Unknown]
  - Pancreatitis [Unknown]
  - Distal intestinal obstruction syndrome [Unknown]
  - Constipation [Unknown]
